FAERS Safety Report 9264162 (Version 3)
Quarter: 2013Q4

REPORT INFORMATION
  Report Type: Spontaneous
  Country: US (occurrence: US)
  Receive Date: 20130430
  Receipt Date: 20131122
  Transmission Date: 20140711
  Serious: Yes (Hospitalization)
  Sender: FDA-Public Use
  Company Number: US-B.I. PHARMACEUTICALS,INC./RIDGEFIELD-2013-BI-11727BP

PATIENT
  Age: 67 Year
  Sex: Male
  Weight: 61.23 kg

DRUGS (5)
  1. PRADAXA [Suspect]
     Indication: ANTICOAGULANT THERAPY
     Dosage: 300 MG
     Dates: start: 20110713, end: 20111126
  2. PRADAXA [Suspect]
     Indication: ATRIAL FIBRILLATION
  3. POTASSIUM CHLORIDE [Concomitant]
     Dates: start: 20110719, end: 20120719
  4. METOPROLOL TARTRATE [Concomitant]
     Dates: start: 20081231, end: 20120719
  5. ASPIRIN [Concomitant]
     Dates: start: 20111104, end: 20121104

REACTIONS (2)
  - Gastrointestinal haemorrhage [Unknown]
  - Anaemia [Unknown]
